FAERS Safety Report 9463637 (Version 2)
Quarter: 2013Q3

REPORT INFORMATION
  Report Type: Spontaneous
  Country: US (occurrence: US)
  Receive Date: 20130819
  Receipt Date: 20130819
  Transmission Date: 20140515
  Serious: Yes (Other)
  Sender: FDA-Public Use
  Company Number: PHEH2013US017011

PATIENT
  Sex: Female

DRUGS (4)
  1. AFINITOR [Suspect]
     Indication: BREAST CANCER
     Dosage: 5 MG, DAILY
     Route: 048
     Dates: start: 20130711
  2. EXEMESTANE [Concomitant]
  3. PRILOSEC [Concomitant]
  4. GABAPENTIN [Concomitant]

REACTIONS (1)
  - Hypoaesthesia [Not Recovered/Not Resolved]
